FAERS Safety Report 6733859-3 (Version None)
Quarter: 2010Q2

REPORT INFORMATION
  Report Type: 
  Country: None (occurrence: None)
  Receive Date: 20100520
  Receipt Date: 20100513
  Transmission Date: 20101027
  Serious: Yes (Other)
  Sender: FDA-Public Use
  Company Number: GB-ROCHE-691194

PATIENT
  Sex: Female
  Weight: 66.8 kg

DRUGS (1)
  1. XELODA [Suspect]
     Dosage: GIVEN TWICE A DAY FOR 14 DAYS
     Route: 048
     Dates: start: 20091112, end: 20100211

REACTIONS (1)
  - DERMATITIS BULLOUS [None]
